FAERS Safety Report 10798519 (Version 1)
Quarter: 2015Q1

REPORT INFORMATION
  Report Type: Spontaneous
  Country: US (occurrence: US)
  Receive Date: 20150216
  Receipt Date: 20150216
  Transmission Date: 20150721
  Serious: No
  Sender: FDA-Public Use
  Company Number: US-ASTRAZENECA-2014SE33048

PATIENT
  Age: 52 Year
  Sex: Female
  Weight: 71.7 kg

DRUGS (4)
  1. DIOVAN [Concomitant]
     Active Substance: VALSARTAN
     Indication: BLOOD PRESSURE ABNORMAL
     Route: 048
  2. CRESTOR [Suspect]
     Active Substance: ROSUVASTATIN CALCIUM
     Indication: BLOOD CHOLESTEROL INCREASED
     Dosage: 5 MG UNKNOWN ON MONDAYS, WEDNESDAYS AND FRIDAYS
     Route: 048
     Dates: start: 2013
  3. CRESTOR [Suspect]
     Active Substance: ROSUVASTATIN CALCIUM
     Indication: BLOOD CHOLESTEROL INCREASED
     Route: 048
     Dates: end: 20140428
  4. TOPROL XL [Suspect]
     Active Substance: METOPROLOL SUCCINATE
     Indication: BLOOD PRESSURE ABNORMAL
     Route: 048
     Dates: start: 1997

REACTIONS (11)
  - Blood cholesterol increased [Recovered/Resolved]
  - Blood sodium increased [Recovered/Resolved]
  - Fatigue [Recovering/Resolving]
  - Intentional product misuse [Not Recovered/Not Resolved]
  - Blood glucose abnormal [Recovered/Resolved]
  - Blood calcium increased [Recovered/Resolved]
  - Drug effect incomplete [Unknown]
  - Off label use [Not Recovered/Not Resolved]
  - Myalgia [Recovered/Resolved]
  - Arthralgia [Recovering/Resolving]
  - Arthritis [Not Recovered/Not Resolved]

NARRATIVE: CASE EVENT DATE: 1997
